FAERS Safety Report 7813456 (Version 2)
Quarter: 2018Q4

REPORT INFORMATION
  Report Type: Spontaneous
  Country: SE (occurrence: SE)
  Receive Date: 20110215
  Receipt Date: 20181108
  Transmission Date: 20190205
  Serious: Yes (Hospitalization, Other)
  Sender: FDA-Public Use
  Company Number: SE-PFIZER INC-2011028841

PATIENT
  Age: 17 Year
  Sex: Female

DRUGS (6)
  1. MIRTAZAPINE. [Concomitant]
     Active Substance: MIRTAZAPINE
  2. CITALOPRAM [Concomitant]
     Active Substance: CITALOPRAM HYDROBROMIDE
  3. IMOVANE [Concomitant]
     Active Substance: ZOPICLONE
  4. XANOR [Concomitant]
     Active Substance: ALPRAZOLAM
  5. STESOLID [Concomitant]
     Active Substance: DIAZEPAM
  6. ZELDOX [Suspect]
     Active Substance: ZIPRASIDONE
     Indication: DEPRESSION
     Dosage: 40 MG, UNK
     Route: 048
     Dates: start: 20081104, end: 20100823

REACTIONS (3)
  - Drug abuse [Unknown]
  - Detoxification [Unknown]
  - Tardive dyskinesia [Not Recovered/Not Resolved]

NARRATIVE: CASE EVENT DATE: 2010
